FAERS Safety Report 10261588 (Version 1)
Quarter: 2014Q2

REPORT INFORMATION
  Report Type: Spontaneous
  Country: US (occurrence: US)
  Receive Date: 20140626
  Receipt Date: 20140626
  Transmission Date: 20141212
  Serious: Yes (Other)
  Sender: FDA-Public Use
  Company Number: US-NOVOPROD-413816

PATIENT
  Age: 70 Year
  Sex: Male
  Weight: 104.31 kg

DRUGS (3)
  1. VICTOZA [Suspect]
     Indication: TYPE 2 DIABETES MELLITUS
     Dosage: 1.8 MG, QD
     Route: 058
     Dates: start: 201401, end: 201406
  2. ATENOLOL [Concomitant]
     Indication: HYPERTENSION
  3. LOSARTAN HCTZ [Concomitant]
     Indication: HYPERTENSION

REACTIONS (1)
  - Bladder mass [Recovered/Resolved]
